FAERS Safety Report 14965046 (Version 1)
Quarter: 2018Q2

REPORT INFORMATION
  Report Type: Spontaneous
  Country: US (occurrence: US)
  Receive Date: 20180511
  Receipt Date: 20180511
  Transmission Date: 20180711
  Serious: Yes (Other)
  Sender: FDA-Public Use
  Company Number: None

PATIENT
  Age: 70 Year
  Sex: Female

DRUGS (1)
  1. PROMACTA [Suspect]
     Active Substance: ELTROMBOPAG OLAMINE
     Indication: THROMBOCYTOPENIA
     Route: 048
     Dates: start: 20180322, end: 20180427

REACTIONS (5)
  - Headache [None]
  - Nausea [None]
  - Fatigue [None]
  - Rash [None]
  - Platelet count decreased [None]

NARRATIVE: CASE EVENT DATE: 20180509
